FAERS Safety Report 5831149-4 (Version None)
Quarter: 2008Q3

REPORT INFORMATION
  Report Type: 
  Country: None (occurrence: None)
  Receive Date: 20080801
  Receipt Date: 20080514
  Transmission Date: 20090109
  Serious: No
  Sender: FDA-Public Use
  Company Number: US-BRISTOL-MYERS SQUIBB COMPANY-14172035

PATIENT
  Age: 69 Year
  Sex: Female

DRUGS (1)
  1. COUMADIN [Suspect]

REACTIONS (4)
  - ERYTHEMA [None]
  - FEELING HOT [None]
  - PAIN IN EXTREMITY [None]
  - PERIPHERAL COLDNESS [None]
